FAERS Safety Report 25842482 (Version 1)
Quarter: 2025Q3

REPORT INFORMATION
  Report Type: Spontaneous
  Country: US (occurrence: US)
  Receive Date: 20250924
  Receipt Date: 20250924
  Transmission Date: 20251020
  Serious: Yes (Other)
  Sender: DR REDDYS
  Company Number: None

PATIENT
  Age: 27 Year
  Sex: Male

DRUGS (2)
  1. FLUCONAZOLE [Suspect]
     Active Substance: FLUCONAZOLE
     Indication: Product used for unknown indication
  2. OSILODROSTAT [Suspect]
     Active Substance: OSILODROSTAT
     Indication: Product used for unknown indication

REACTIONS (2)
  - Adrenal insufficiency [Unknown]
  - Drug interaction [Unknown]
